FAERS Safety Report 8315237-9 (Version None)
Quarter: 2012Q2

REPORT INFORMATION
  Report Type: 
  Country: None (occurrence: None)
  Receive Date: 20120426
  Receipt Date: 20111212
  Transmission Date: 20120825
  Serious: No
  Sender: FDA-Public Use
  Company Number: US-MYLANLABS-2011S1025660

PATIENT
  Sex: Female

DRUGS (1)
  1. DILTIAZEM HCL [Suspect]
     Indication: BLOOD PRESSURE
     Route: 048

REACTIONS (3)
  - DRUG EFFECT DECREASED [None]
  - MEDICATION RESIDUE [None]
  - BLOOD PRESSURE INCREASED [None]
